FAERS Safety Report 6904962-X (Version None)
Quarter: 2010Q3

REPORT INFORMATION
  Report Type: 
  Country: None (occurrence: None)
  Receive Date: 20100804
  Receipt Date: 20090813
  Transmission Date: 20110219
  Serious: No
  Sender: FDA-Public Use
  Company Number: US-PFIZER INC-2009233411

PATIENT
  Sex: Female
  Weight: 60.3 kg

DRUGS (2)
  1. LYRICA [Suspect]
     Indication: LYME DISEASE
     Dosage: 100 MG, 3X/DAY
     Dates: start: 20090301
  2. ULTRAM [Concomitant]
     Dosage: UNK

REACTIONS (2)
  - HUNGER [None]
  - WEIGHT INCREASED [None]
